FAERS Safety Report 5644509-1 (Version None)
Quarter: 2008Q1

REPORT INFORMATION
  Report Type: 
  Country: None (occurrence: None)
  Receive Date: 20080229
  Receipt Date: 20070130
  Transmission Date: 20080703
  Serious: No
  Sender: FDA-Public Use
  Company Number: A0637617A

PATIENT
  Age: 46 Year
  Sex: Female

DRUGS (2)
  1. VALTREX [Suspect]
     Indication: GENITAL HERPES
     Dosage: 500MG VARIABLE DOSE
     Route: 048
     Dates: start: 20050101
  2. LEVOTHYROXINE SODIUM [Concomitant]

REACTIONS (3)
  - DIZZINESS [None]
  - FLUSHING [None]
  - HYPERHIDROSIS [None]
